FAERS Safety Report 4800064-7 (Version None)
Quarter: 2005Q4

REPORT INFORMATION
  Report Type: 
  Country: None (occurrence: None)
  Receive Date: 20051017
  Receipt Date: 20051005
  Transmission Date: 20060501
  Serious: Yes (Other)
  Sender: FDA-Public Use
  Company Number: PHNU2005DE03389

PATIENT
  Age: 76 Year
  Sex: Female
  Weight: 88 kg

DRUGS (5)
  1. CIBADREX [Suspect]
     Indication: HYPERTENSION
     Dosage: 1 DF, QD
     Route: 048
     Dates: start: 20030201, end: 20040806
  2. FUROSEMIDE ^RATIOPHARM^ [Concomitant]
     Indication: POLYURIA
     Dosage: 1 DF, QD
     Route: 048
     Dates: start: 19840101
  3. COVERSUM COMBI [Concomitant]
     Indication: HYPERTENSION
     Dosage: 1 DF, QD
     Route: 048
     Dates: start: 20030101, end: 20030101
  4. CALCIUM GLUCONATE [Concomitant]
     Dosage: 80 TAB/YEAR
     Route: 048
     Dates: start: 20010101
  5. MAGNESIUM [Concomitant]
     Dosage: 80 TAB/YEAR
     Route: 048
     Dates: start: 20010101

REACTIONS (14)
  - ALANINE AMINOTRANSFERASE INCREASED [None]
  - ANTI-HBC ANTIBODY POSITIVE [None]
  - ANTINUCLEAR ANTIBODY POSITIVE [None]
  - ASPARTATE AMINOTRANSFERASE INCREASED [None]
  - BLOOD BILIRUBIN INCREASED [None]
  - CHOLESTASIS [None]
  - CYTOMEGALOVIRUS ANTIBODY POSITIVE [None]
  - EPSTEIN-BARR VIRUS ANTIBODY POSITIVE [None]
  - GAMMA-GLUTAMYLTRANSFERASE INCREASED [None]
  - HEPATIC FIBROSIS [None]
  - HEPATIC STEATOSIS [None]
  - HEPATITIS ACUTE [None]
  - INFLAMMATION [None]
  - SMOOTH MUSCLE ANTIBODY POSITIVE [None]
